FAERS Safety Report 10917637 (Version 1)
Quarter: 2015Q1

REPORT INFORMATION
  Report Type: Spontaneous
  Country: US (occurrence: None)
  Receive Date: 20150309
  Receipt Date: 20150309
  Transmission Date: 20150721
  Serious: No
  Sender: FDA-Public Use
  Company Number: 14MRZ-00229

PATIENT
  Age: 66 Year
  Sex: Male

DRUGS (2)
  1. ONGLYZA [Concomitant]
     Active Substance: SAXAGLIPTIN HYDROCHLORIDE
  2. NAFTIN [Suspect]
     Active Substance: NAFTIFINE HYDROCHLORIDE
     Indication: ONYCHOMYCOSIS
     Dosage: 2% TOPICAL APPLICATION, TOPICAL ?
     Route: 061
     Dates: start: 20140516

REACTIONS (4)
  - Eyelid ptosis [None]
  - Fall [None]
  - Balance disorder [None]
  - Diplopia [None]

NARRATIVE: CASE EVENT DATE: 20140516
